FAERS Safety Report 9056621 (Version 1)
Quarter: 2013Q1

REPORT INFORMATION
  Report Type: Spontaneous
  Country: US (occurrence: US)
  Receive Date: 20130204
  Receipt Date: 20130204
  Transmission Date: 20140127
  Serious: No
  Sender: FDA-Public Use
  Company Number: US-009507513-1301USA014142

PATIENT
  Sex: Female

DRUGS (5)
  1. JANUMET XR [Suspect]
     Indication: DIABETES MELLITUS
     Dosage: 100/1000 MG
     Route: 048
     Dates: start: 201207
  2. VITAMINS (UNSPECIFIED) [Concomitant]
  3. PROTONIX [Concomitant]
  4. SINGULAIR [Concomitant]
  5. ALEVE [Concomitant]

REACTIONS (2)
  - Obesity surgery [Unknown]
  - Diabetic neuropathy [Not Recovered/Not Resolved]
